FAERS Safety Report 23258743 (Version 1)
Quarter: 2023Q4

REPORT INFORMATION
  Report Type: Spontaneous
  Country: US (occurrence: None)
  Receive Date: 20231202
  Receipt Date: 20231202
  Transmission Date: 20240109
  Serious: Yes (Disabling)
  Sender: FDA-Public Use
  Company Number: None

PATIENT
  Age: 66 Year
  Sex: Female
  Weight: 85.05 kg

DRUGS (20)
  1. VTAMA [Suspect]
     Active Substance: TAPINAROF
     Indication: Rash
     Dosage: OTHER STRENGTH : NONE;?FREQUENCY : DAILY;?
     Route: 061
     Dates: start: 20231128, end: 20231129
  2. VTAMA [Suspect]
     Active Substance: TAPINAROF
     Indication: Rash
  3. EZETIMIBE [Concomitant]
     Active Substance: EZETIMIBE
  4. CARVEDILOL [Concomitant]
     Active Substance: CARVEDILOL
  5. FAMOTIDINE [Concomitant]
     Active Substance: FAMOTIDINE
  6. Topical Tretinoin 1% Cream [Concomitant]
  7. Topical Clobetasol 5% Solution [Concomitant]
  8. Topical Minoxidil 5% [Concomitant]
  9. COENZYME Q10 [Concomitant]
     Active Substance: DIETARY SUPPLEMENT\UBIDECARENONE
  10. Caltrate Calcium [Concomitant]
  11. VITAMIN D3 [Concomitant]
     Active Substance: CHOLECALCIFEROL
  12. Neocell Super Collagen +C Type 1 + 3 [Concomitant]
  13. HYALURONIC ACID [Concomitant]
     Active Substance: HYALURONIC ACID
  14. Kyolic Aged Garlic [Concomitant]
  15. Citrus Bergamot [Concomitant]
  16. Folexin [Concomitant]
  17. Allegra 280 [Concomitant]
  18. ZYRTEC [Concomitant]
     Active Substance: CETIRIZINE HYDROCHLORIDE
  19. Metamucil Powder [Concomitant]
  20. ALEVE [Concomitant]
     Active Substance: NAPROXEN SODIUM

REACTIONS (12)
  - Pain [None]
  - Middle insomnia [None]
  - Headache [None]
  - Pain in extremity [None]
  - Application site pain [None]
  - Restless legs syndrome [None]
  - Myalgia [None]
  - Arthralgia [None]
  - Back pain [None]
  - Movement disorder [None]
  - Bone pain [None]
  - Flatulence [None]

NARRATIVE: CASE EVENT DATE: 20231129
